FAERS Safety Report 7879213-2 (Version None)
Quarter: 2011Q4

REPORT INFORMATION
  Report Type: 
  Country: None (occurrence: None)
  Receive Date: 20111101
  Receipt Date: 20111028
  Transmission Date: 20120403
  Serious: Yes (Death)
  Sender: FDA-Public Use
  Company Number: JP-B.I. PHARMACEUTICALS,INC./RIDGEFIELD-2011-BP-25113NB

PATIENT
  Age: 75 Year
  Sex: Male

DRUGS (2)
  1. EXFORGE [Concomitant]
     Route: 048
  2. PRADAXA [Suspect]
     Dosage: 300 MG
     Route: 048
     Dates: start: 20110520

REACTIONS (2)
  - CARDIO-RESPIRATORY ARREST [None]
  - PULMONARY ALVEOLAR HAEMORRHAGE [None]
